FAERS Safety Report 24354889 (Version 1)
Quarter: 2024Q3

REPORT INFORMATION
  Report Type: Spontaneous
  Country: US (occurrence: US)
  Receive Date: 20240923
  Receipt Date: 20240923
  Transmission Date: 20241017
  Serious: Yes (Hospitalization, Other)
  Sender: MERCK
  Company Number: US-009507513-2409USA005843

PATIENT
  Age: 66 Year
  Sex: Female

DRUGS (2)
  1. TICE BCG [Suspect]
     Active Substance: BACILLUS CALMETTE-GUERIN SUBSTRAIN TICE LIVE ANTIGEN
     Indication: Bladder cancer
     Dosage: UNK
     Dates: start: 2015
  2. JELMYTO [Suspect]
     Active Substance: MITOMYCIN
     Indication: Renal cancer
     Dosage: UNK

REACTIONS (7)
  - Renal cancer [Unknown]
  - Gastrectomy [Unknown]
  - Renal cancer recurrent [Unknown]
  - Malignant neoplasm progression [Unknown]
  - Ulcer haemorrhage [Unknown]
  - Nausea [Unknown]
  - Fatigue [Unknown]

NARRATIVE: CASE EVENT DATE: 20170101
